FAERS Safety Report 4885391-X (Version None)
Quarter: 2005Q4

REPORT INFORMATION
  Report Type: 
  Country: None (occurrence: None)
  Receive Date: 20051222
  Receipt Date: 20050929
  Transmission Date: 20060501
  Serious: No
  Sender: FDA-Public Use
  Company Number: SP00507

PATIENT
  Sex: Female

DRUGS (1)
  1. XIFAXAN [Suspect]
     Indication: OVERGROWTH BACTERIAL
     Dosage: 200MG/BID, ORAL
     Route: 048
     Dates: start: 20050914

REACTIONS (1)
  - STOOL ANALYSIS ABNORMAL [None]
